FAERS Safety Report 9874783 (Version 1)
Quarter: 2014Q1

REPORT INFORMATION
  Report Type: Spontaneous
  Country: US (occurrence: None)
  Receive Date: 20140205
  Receipt Date: 20140205
  Transmission Date: 20141002
  Serious: Yes (Other)
  Sender: FDA-Public Use
  Company Number: None

PATIENT
  Age: 50 Year
  Sex: Male
  Weight: 76.2 kg

DRUGS (1)
  1. CIPROFLOXACIN 500MG AUROBINDO PHARM [Suspect]
     Indication: PROSTATITIS
     Route: 048
     Dates: start: 20140118, end: 20140126

REACTIONS (4)
  - Neuropathy peripheral [None]
  - Arthralgia [None]
  - Tendonitis [None]
  - Arthralgia [None]
